FAERS Safety Report 22294933 (Version 1)
Quarter: 2023Q2

REPORT INFORMATION
  Report Type: Spontaneous
  Country: US (occurrence: None)
  Receive Date: 20230505
  Receipt Date: 20230505
  Transmission Date: 20230722
  Serious: Yes (Life-Threatening, Hospitalization)
  Sender: FDA-Public Use
  Company Number: None

PATIENT
  Age: 45 Year
  Sex: Male
  Weight: 77.8 kg

DRUGS (1)
  1. BELATACEPT [Suspect]
     Active Substance: BELATACEPT
     Dosage: OTHER FREQUENCY : EVERY 28 DAYS;?
     Route: 042
     Dates: start: 20230313, end: 20230505

REACTIONS (6)
  - Transplant failure [None]
  - Hypoxia [None]
  - Hypotension [None]
  - General physical health deterioration [None]
  - Lung consolidation [None]
  - Respiratory failure [None]

NARRATIVE: CASE EVENT DATE: 20230501
